FAERS Safety Report 6463796-3 (Version None)
Quarter: 2009Q4

REPORT INFORMATION
  Report Type: 
  Country: None (occurrence: None)
  Receive Date: 20091201
  Receipt Date: 20090910
  Transmission Date: 20100525
  Serious: Yes (Hospitalization, Other)
  Sender: FDA-Public Use
  Company Number: US-JNJFOC-20090903901

PATIENT
  Sex: Male
  Weight: 73.48 kg

DRUGS (12)
  1. FENTANYL CITRATE [Suspect]
     Route: 062
     Dates: start: 20090701
  2. FENTANYL CITRATE [Suspect]
     Indication: ABDOMINAL PAIN
     Dosage: 3 PATCHES OF 50 UG/HR TO MAKE A DOSE OF 150 UG/HR
     Route: 062
     Dates: start: 20090701
  3. DURAGESIC-100 [Suspect]
     Indication: ABDOMINAL PAIN
     Route: 062
  4. FENTANYL CITRATE [Suspect]
     Indication: ABDOMINAL PAIN
     Route: 062
     Dates: start: 19990101, end: 20090701
  5. FENTANYL-100 [Suspect]
     Indication: ABDOMINAL PAIN
     Route: 062
     Dates: start: 20080701
  6. FENTANYL-100 [Suspect]
     Route: 062
  7. XANAX [Concomitant]
     Indication: ANXIETY
     Dosage: EVERY 4-6 HOURS AS NEEDED
     Route: 048
  8. TRAZODONE HCL [Concomitant]
     Indication: DEPRESSION
     Dosage: AT BED TIME
     Route: 048
  9. NEXIUM [Concomitant]
     Indication: PANCREATITIS
     Route: 048
  10. PREVACID [Concomitant]
     Indication: PANCREATITIS
     Route: 048
  11. UNKNOWN MEDICATION [Concomitant]
     Indication: ANXIETY
     Route: 048
  12. FISH OIL [Concomitant]
     Indication: MEDICAL DIET
     Route: 048

REACTIONS (18)
  - ABDOMINAL PAIN [None]
  - ABNORMAL LOSS OF WEIGHT [None]
  - DIABETES MELLITUS [None]
  - DRUG INEFFECTIVE [None]
  - DRUG TOLERANCE [None]
  - DYSPEPSIA [None]
  - FEELING ABNORMAL [None]
  - INAPPROPRIATE SCHEDULE OF DRUG ADMINISTRATION [None]
  - INTENTIONAL DRUG MISUSE [None]
  - MALAISE [None]
  - PANCREATITIS [None]
  - PANIC DISORDER [None]
  - PHOTOPHOBIA [None]
  - PRODUCT COUNTERFEIT [None]
  - PRODUCT QUALITY ISSUE [None]
  - THROAT TIGHTNESS [None]
  - TREATMENT NONCOMPLIANCE [None]
  - WITHDRAWAL SYNDROME [None]
